FAERS Safety Report 9877466 (Version 5)
Quarter: 2014Q1

REPORT INFORMATION
  Report Type: Spontaneous
  Country: US (occurrence: US)
  Receive Date: 20140206
  Receipt Date: 20140313
  Transmission Date: 20141002
  Serious: Yes (Other)
  Sender: FDA-Public Use
  Company Number: US-009507513-1402USA000547

PATIENT
  Age: 28 Year
  Sex: Female
  Weight: 95.24 kg

DRUGS (2)
  1. IMPLANON [Suspect]
     Indication: CONTRACEPTION
     Dosage: 1 ROD (STRENGTH: 68)
     Route: 059
     Dates: start: 20101221, end: 20140304
  2. ATARAX (ALPRAZOLAM) [Concomitant]

REACTIONS (6)
  - Surgery [Not Recovered/Not Resolved]
  - Surgery [Unknown]
  - Medical device complication [Recovered/Resolved]
  - Device difficult to use [Recovered/Resolved]
  - Medical device complication [Recovered/Resolved]
  - Incorrect drug administration duration [Unknown]
